FAERS Safety Report 11949997 (Version 3)
Quarter: 2016Q3

REPORT INFORMATION
  Report Type: Spontaneous
  Country: US (occurrence: US)
  Receive Date: 20160126
  Receipt Date: 20160811
  Transmission Date: 20161109
  Serious: Yes (Other)
  Sender: FDA-Public Use
  Company Number: US-TEVA-627630USA

PATIENT
  Age: 57 Year
  Sex: Female

DRUGS (1)
  1. ZECUITY [Suspect]
     Active Substance: SUMATRIPTAN SUCCINATE
     Route: 062
     Dates: start: 20150323, end: 20150323

REACTIONS (12)
  - Application site vesicles [Recovered/Resolved]
  - Application site burn [Recovered/Resolved]
  - Application site scar [Recovering/Resolving]
  - Application site discharge [Recovered/Resolved]
  - Chemical injury [Recovered/Resolved]
  - Application site pruritus [Recovered/Resolved]
  - Application site paraesthesia [Recovered/Resolved]
  - Application site pain [Recovered/Resolved]
  - Application site erythema [Recovered/Resolved]
  - Application site scab [Recovered/Resolved]
  - Application site erythema [Recovered/Resolved]
  - Application site discolouration [Recovered/Resolved]

NARRATIVE: CASE EVENT DATE: 20150323
